FAERS Safety Report 9280376 (Version 1)
Quarter: 2013Q1

REPORT INFORMATION
  Report Type: Spontaneous
  Country: US (occurrence: None)
  Receive Date: 20130320
  Receipt Date: 20130320
  Transmission Date: 20140127
  Serious: Yes (Other)
  Sender: FDA-Public Use
  Company Number: 220345

PATIENT
  Age: 68 Year
  Sex: Female

DRUGS (1)
  1. PICATO [Suspect]
     Indication: ACTINIC KERATOSIS
     Route: 061
     Dates: start: 20130127, end: 20130128

REACTIONS (10)
  - Application site pruritus [None]
  - Drug administered at inappropriate site [None]
  - Superficial injury of eye [None]
  - Eye irritation [None]
  - Photopsia [None]
  - Conjunctivitis [None]
  - Application site vesicles [None]
  - Application site pain [None]
  - Accidental exposure to product [None]
  - Application site erythema [None]
